FAERS Safety Report 8336974-6 (Version None)
Quarter: 2012Q2

REPORT INFORMATION
  Report Type: 
  Country: None (occurrence: None)
  Receive Date: 20120504
  Receipt Date: 20120503
  Transmission Date: 20120825
  Serious: Yes (Life-Threatening, Hospitalization)
  Sender: FDA-Public Use
  Company Number: PHHY2012GB029575

PATIENT
  Age: 60 Year
  Sex: Male

DRUGS (7)
  1. IBUPROFEN [Suspect]
  2. RAMIPRIL [Suspect]
     Dates: end: 20120321
  3. OMEPRAZOLE [Concomitant]
  4. CO-DYDRAMOL [Suspect]
     Dosage: UNK
     Dates: start: 20120320, end: 20120321
  5. SIMVASTATIN [Concomitant]
  6. AMLODIPINE [Concomitant]
  7. CLOPIDOGREL [Concomitant]

REACTIONS (7)
  - LARYNGEAL OEDEMA [None]
  - EPIGLOTTIC OEDEMA [None]
  - DROOLING [None]
  - LIP SWELLING [None]
  - LOSS OF CONSCIOUSNESS [None]
  - ANGIOEDEMA [None]
  - SWOLLEN TONGUE [None]
